FAERS Safety Report 21547867 (Version 1)
Quarter: 2022Q4

REPORT INFORMATION
  Report Type: Spontaneous
  Country: US (occurrence: US)
  Receive Date: 20221103
  Receipt Date: 20221103
  Transmission Date: 20230113
  Serious: Yes (Hospitalization, Other)
  Sender: FDA-Public Use
  Company Number: US-MYLANLABS-2022M1120183

PATIENT
  Sex: Female
  Weight: 104.33 kg

DRUGS (18)
  1. GABAPENTIN [Suspect]
     Active Substance: GABAPENTIN
     Indication: Product used for unknown indication
     Dosage: UNK
     Route: 048
  2. PAXLOVID [Suspect]
     Active Substance: NIRMATRELVIR\RITONAVIR
     Indication: Product used for unknown indication
     Dosage: UNK
     Route: 065
  3. CYCLOBENZAPRINE [Concomitant]
     Active Substance: CYCLOBENZAPRINE
     Indication: Muscle spasms
     Dosage: 5 MILLIGRAM, TID, (BY MOUTH 3 TIMES DAILY AS NEEDED)
     Route: 048
  4. FLUTICASONE PROPIONATE [Concomitant]
     Active Substance: FLUTICASONE PROPIONATE
     Indication: Rhinitis
     Dosage: 2 DOSAGE FORM, QD, (2 SPRAYS BY EACH NOSTRIL DAILY AS NEEDED)
     Route: 045
  5. NEURONTIN [Concomitant]
     Active Substance: GABAPENTIN
     Dosage: 300 MILLIGRAM, PM, (1 CAPSULE BY MOUTH EVERY EVENING)
     Route: 048
  6. NEURONTIN [Concomitant]
     Active Substance: GABAPENTIN
     Dosage: 300 MILLIGRAM, AM
     Route: 048
     Dates: start: 20221020
  7. ACETAMINOPHEN\HYDROCODONE [Concomitant]
     Active Substance: ACETAMINOPHEN\HYDROCODONE
     Indication: Pain
     Dosage: 1 DOSAGE FORM, Q6H, (1 TABLET BY MOUTH EVERY 6 HOURS)
     Route: 048
  8. ADVIL [Concomitant]
     Active Substance: IBUPROFEN
     Indication: Pain
     Dosage: 200 MILLIGRAM, Q6H, (EVERY 6 HOURS BY MOUTH)
     Route: 048
  9. MOTRIN [Concomitant]
     Active Substance: IBUPROFEN
     Indication: Pain
     Dosage: 200 MILLIGRAM, Q6H
     Route: 048
  10. MOBIC [Concomitant]
     Active Substance: MELOXICAM
     Dosage: 15 MILLIGRAM, QD, (BY MOUTH ONCE DAILY)
     Route: 048
  11. ZOFRAN [Concomitant]
     Active Substance: ONDANSETRON HYDROCHLORIDE
     Dosage: 4 MILLIGRAM, (EVERY 12 HOURS BY MOUTH)
     Route: 048
  12. ROCEPHIN [Concomitant]
     Active Substance: CEFTRIAXONE SODIUM
     Indication: Bacterial test positive
     Dosage: 50 MILLILITER, QD, (INJECT INTO VEIN ONCE DAILY)
     Route: 042
  13. ROCEPHIN [Concomitant]
     Active Substance: CEFTRIAXONE SODIUM
     Indication: Urinary tract infection
     Dosage: 2 GRAM, AM
     Route: 042
     Dates: start: 20221020
  14. PYRIDIUM [Concomitant]
     Active Substance: PHENAZOPYRIDINE
     Dosage: 200 MILLIGRAM, TID, (1 TABLET BY MOUTH 3 TIMES DAY 3 DAY)
     Route: 048
  15. TYLENOL [Concomitant]
     Active Substance: ACETAMINOPHEN
     Indication: Pain
     Dosage: 500 MILLIGRAM, Q6H, (BY MOUTH EVERY 6 HOURS)
     Route: 048
  16. TYLENOL [Concomitant]
     Active Substance: ACETAMINOPHEN
     Dosage: 650 MILLIGRAM, AM
     Route: 048
     Dates: start: 20221020
  17. VENTOLIN HFA [Concomitant]
     Active Substance: ALBUTEROL SULFATE
     Indication: Wheezing
     Dosage: 2 DOSAGE FORM, Q6H
  18. CELEXA [Concomitant]
     Active Substance: CITALOPRAM HYDROBROMIDE
     Dosage: 40 MILLIGRAM, AM, (BY MOUTH ONCE DAILY)
     Route: 048
     Dates: start: 20221020

REACTIONS (9)
  - Sepsis [Unknown]
  - Pyelonephritis [Unknown]
  - Hypokalaemia [Unknown]
  - Flank pain [Unknown]
  - Liver disorder [Unknown]
  - Dehydration [Unknown]
  - Normocytic anaemia [Unknown]
  - Hypomagnesaemia [Unknown]
  - Blood culture positive [Unknown]
